FAERS Safety Report 16477257 (Version 1)
Quarter: 2019Q2

REPORT INFORMATION
  Report Type: Spontaneous
  Country: FR (occurrence: FR)
  Receive Date: 20190626
  Receipt Date: 20190626
  Transmission Date: 20190711
  Serious: Yes (Hospitalization)
  Sender: FDA-Public Use
  Company Number: FR-TEVA-2019-FR-1067498

PATIENT
  Age: 75 Year
  Sex: Female
  Weight: 70.8 kg

DRUGS (3)
  1. LOSARTAN POTASSIQUE [Suspect]
     Active Substance: LOSARTAN POTASSIUM
     Indication: HYPERTENSION
     Dosage: 50 MILLIGRAM DAILY;
     Route: 048
     Dates: end: 201905
  2. PAROXETINE. [Suspect]
     Active Substance: PAROXETINE
     Dosage: 20 MILLIGRAM DAILY;
     Route: 048
     Dates: end: 201905
  3. HYDROCHLOROTHIAZIDE. [Suspect]
     Active Substance: HYDROCHLOROTHIAZIDE
     Indication: HYPERTENSION
     Dosage: 12.5 MILLIGRAM DAILY;
     Route: 048
     Dates: end: 201905

REACTIONS (3)
  - Hyponatraemia [Recovering/Resolving]
  - Dysarthria [Recovered/Resolved]
  - Confusional state [Recovered/Resolved]

NARRATIVE: CASE EVENT DATE: 20190524
